FAERS Safety Report 22631389 (Version 1)
Quarter: 2023Q2

REPORT INFORMATION
  Report Type: Spontaneous
  Country: VN (occurrence: VN)
  Receive Date: 20230623
  Receipt Date: 20230623
  Transmission Date: 20230721
  Serious: Yes (Death)
  Sender: FDA-Public Use
  Company Number: VN-002147023-NVSC2023VN083364

PATIENT
  Sex: Female

DRUGS (1)
  1. ONASEMNOGENE ABEPARVOVEC [Suspect]
     Active Substance: ONASEMNOGENE ABEPARVOVEC
     Indication: Spinal muscular atrophy
     Dosage: ONCE/SINGLE, (WEIGHT FOR DRUG ORDER WAS 10.5 KG)
     Route: 042
     Dates: start: 20211028, end: 20211028

REACTIONS (1)
  - Ill-defined disorder [Fatal]
